FAERS Safety Report 4913615-9 (Version None)
Quarter: 2006Q1

REPORT INFORMATION
  Report Type: 
  Country: None (occurrence: None)
  Receive Date: 20060214
  Receipt Date: 20060214
  Transmission Date: 20060701
  Serious: Yes (Hospitalization)
  Sender: FDA-Public Use
  Company Number: None

PATIENT
  Sex: Male
  Weight: 97.6 kg

DRUGS (1)
  1. GEMZAR [Suspect]
     Indication: SARCOMA
     Dosage: 2025 MG DAY 1 AND 8 IV
     Route: 042
     Dates: start: 20060126, end: 20060202

REACTIONS (10)
  - DILATATION ATRIAL [None]
  - ELECTROCARDIOGRAM ABNORMAL [None]
  - ERUCTATION [None]
  - FEELING COLD [None]
  - HYPERHIDROSIS [None]
  - MYOCARDIAL INFARCTION [None]
  - PROCEDURAL COMPLICATION [None]
  - RETCHING [None]
  - SHOULDER PAIN [None]
  - TRANSIENT ISCHAEMIC ATTACK [None]
